FAERS Safety Report 9189800 (Version 1)
Quarter: 2013Q1

REPORT INFORMATION
  Report Type: Spontaneous
  Country: GB (occurrence: None)
  Receive Date: 20130322
  Receipt Date: 20130322
  Transmission Date: 20140127
  Serious: Yes (Other)
  Sender: FDA-Public Use
  Company Number: GER/UKI/13/0028588

PATIENT
  Age: 60 Year
  Sex: Male
  Weight: 88 kg

DRUGS (2)
  1. TERBINAFINE (TERBINAFINE) [Suspect]
     Route: 048
     Dates: start: 20121220, end: 20130114
  2. CETIRIZINE (CETIRIZINE) [Concomitant]

REACTIONS (2)
  - Anger [None]
  - Violence-related symptom [None]
